FAERS Safety Report 23959693 (Version 1)
Quarter: 2024Q2

REPORT INFORMATION
  Report Type: Other
  Country: CN (occurrence: CN)
  Receive Date: 20240611
  Receipt Date: 20240611
  Transmission Date: 20240716
  Serious: Yes (Hospitalization, Other)
  Sender: FDA-Public Use
  Company Number: CN-QILU PHARMACEUTICAL CO.LTD.-QLU-000066-2024

PATIENT
  Age: 44 Year
  Sex: Female
  Weight: 49 kg

DRUGS (2)
  1. OLANZAPINE [Suspect]
     Active Substance: OLANZAPINE
     Indication: Psychiatric symptom
     Dosage: 2.5 MG DAILY
     Route: 048
     Dates: start: 20240523, end: 20240529
  2. Diyushengbai [Concomitant]
     Indication: Leukocytosis
     Dosage: 0.400 G, TID
     Route: 048
     Dates: start: 20240523, end: 20240529

REACTIONS (1)
  - Hypokalaemia [Recovering/Resolving]

NARRATIVE: CASE EVENT DATE: 20240524
